FAERS Safety Report 9194530 (Version 1)
Quarter: 2013Q1

REPORT INFORMATION
  Report Type: Spontaneous
  Country: US (occurrence: US)
  Receive Date: 20130327
  Receipt Date: 20130327
  Transmission Date: 20140127
  Serious: No
  Sender: FDA-Public Use
  Company Number: US-ALLERGAN-1206316US

PATIENT
  Sex: Female

DRUGS (1)
  1. LATISSE 0.03% [Suspect]
     Indication: GROWTH OF EYELASHES
     Dosage: USES 5 TO 6 TIMES A WEEK, AS DIRECTED
     Route: 061

REACTIONS (3)
  - Pregnancy [Unknown]
  - Drug ineffective [Unknown]
  - Madarosis [Recovering/Resolving]
